FAERS Safety Report 8979992 (Version 2)
Quarter: 2013Q2

REPORT INFORMATION
  Report Type: Spontaneous
  Country: PL (occurrence: PL)
  Receive Date: 20121221
  Receipt Date: 20130401
  Transmission Date: 20140414
  Serious: Yes (Hospitalization, Other)
  Sender: FDA-Public Use
  Company Number: PHHY2012PL116084

PATIENT
  Sex: Female

DRUGS (1)
  1. TEGRETOL CR [Suspect]
     Indication: AURA
     Dosage: UNK
     Route: 048
     Dates: end: 20121205

REACTIONS (4)
  - Seizure cluster [Unknown]
  - Epilepsy [Unknown]
  - Automatism [Unknown]
  - Drug ineffective [Unknown]
